FAERS Safety Report 9924728 (Version 5)
Quarter: 2014Q2

REPORT INFORMATION
  Report Type: Spontaneous
  Country: FR (occurrence: None)
  Receive Date: 20140220
  Receipt Date: 20140613
  Transmission Date: 20141212
  Serious: Yes (Death, Life-Threatening, Hospitalization, Other)
  Sender: FDA-Public Use
  Company Number: 2014FR003028

PATIENT
  Age: 62 Year
  Sex: Male
  Weight: 171 kg

DRUGS (25)
  1. ICLUSIG (PONATINIB) TABLET [Suspect]
     Indication: CHRONIC MYELOID LEUKAEMIA
     Route: 048
     Dates: start: 201303, end: 201307
  2. GLUCIDION (GLUCOSE, POTASSIUM CHLORIDE, SODIUM CHLORIDE) [Concomitant]
  3. MEDIALIPIDE (GLYCEROL, GLUCINE MAX SEED OIL, LECITHIN, TRIGLYCERIDES) [Concomitant]
  4. HYPERAMINE 30 (ALANINE, ARGININE HYDROCHLORIDE, ASPARTIC ACID, CYSTEINE, GLUTAMIC ACID, GLYCINE, HISTIDINE HYDROCHLORIDE, ISOLEUCINE, LEUCINE, LYSINE HYDROCHLORIDE, METHIONINE, PHENYLALANINE, PROLINE, SERINE, THREONINE, TRYPTOPHAN, I-, TYROSINE, VALINE) [Concomitant]
  5. CALCIUM CHLORIDE (CALCIUM CHLORIDE) [Concomitant]
  6. PHOCYTAN (GLUCOSE 1-PHOSPHATE DISODIUM) [Concomitant]
  7. POTASSIUM CHLORIDE (POTASSIUM CHLORIDE) [Concomitant]
  8. MAGNESIUM  CHLORIDE (MAGNESIUM CHLORIDE) [Concomitant]
  9. CERNEVIT (ASCORBIC ACID, BIOTIN, COCARBOXYLASE TETRAHYDRATE, COLECALCIFEROL, CYANOCOBALAMIN, DEXPANTHENOL, FOLIC ACID, NICOTINAMIDE, PYRIDOXINE HYDROCHLORIDE, RETINOL PALMITATE, RIBOFLAVIN SODIUM PHOSPHATE, TOCOPHEROL) [Concomitant]
  10. DECAN (DEXAMETHASONE SODIUM PHOPSHATE) [Concomitant]
  11. TAZOCILLINE (PIPERACILLIN SODIUM, TAZOBACTAM SODIUM) [Concomitant]
  12. VANCOMYCINE (VANCOMYCIN HYDROCHLORIDE) [Concomitant]
  13. CANCIDAS (CASPOFUNGIN ACETATE) [Concomitant]
  14. ACICLOVIR (ACICLOVIR SODIUM) [Concomitant]
  15. DEBRIDAT (TRIMEBUTINE) [Concomitant]
  16. SPASFON (PHLOROGLUCINOL, TRIMETHYLPHLOROGLUCINOL) [Concomitant]
  17. SOLUMEDROL (METHYLPREDNISOLONE SODIUM SUCCINATE) [Concomitant]
  18. ALBUMINE (ALBUMIN HUMAN) [Concomitant]
  19. ACTRAPID (INSULIN HUMAN) [Concomitant]
  20. LASILIX (FUROSEMIDE SODIUM) [Concomitant]
  21. LOXEN (NICARDIPINE HYDROCHLORIDE) [Concomitant]
  22. EUPANTOL (PANTOPRAZOLE SODIUM SESQUIHYDRATE) [Concomitant]
  23. SEROPRAM (CITALOPRAM HYDROCHLORIDE) [Concomitant]
  24. ATARAX (HYDROXYZINE EMBONATE) [Concomitant]
  25. PERFALGAN (PARACETAMOL) [Concomitant]

REACTIONS (39)
  - Altered state of consciousness [None]
  - Psychomotor retardation [None]
  - Pleural effusion [None]
  - Pericardial effusion [None]
  - Major depression [None]
  - Exfoliative rash [None]
  - Haemochromatosis [None]
  - Cholestasis [None]
  - Head injury [None]
  - Fall [None]
  - Post procedural complication [None]
  - Anaemia [None]
  - Thrombocytopenia [None]
  - Cytomegalovirus infection [None]
  - Blood potassium decreased [None]
  - Epstein-Barr virus infection [None]
  - Human herpesvirus 6 infection [None]
  - BK virus infection [None]
  - Disease recurrence [None]
  - Skin lesion [None]
  - Folliculitis [None]
  - Depression [None]
  - Respiratory distress [None]
  - Transplantation complication [None]
  - Enterococcus test positive [None]
  - Pancytopenia [None]
  - Hepatocellular injury [None]
  - Oral candidiasis [None]
  - Clear cell renal cell carcinoma [None]
  - Extrapyramidal disorder [None]
  - Jaundice cholestatic [None]
  - Skin toxicity [None]
  - Purpura [None]
  - Petechiae [None]
  - Ventricular hypertrophy [None]
  - Haemorrhage intracranial [None]
  - Stem cell transplant [None]
  - Acute respiratory distress syndrome [None]
  - Type 1 diabetes mellitus [None]
